FAERS Safety Report 9516909 (Version 3)
Quarter: 2013Q4

REPORT INFORMATION
  Report Type: Spontaneous
  Country: US (occurrence: US)
  Receive Date: 20130911
  Receipt Date: 20131023
  Transmission Date: 20140711
  Serious: Yes (Other)
  Sender: FDA-Public Use
  Company Number: US-PFIZER INC-2013261729

PATIENT
  Age: 37 Year
  Sex: Female

DRUGS (3)
  1. EFFEXOR XR [Suspect]
     Indication: DEPRESSION
     Dosage: 75 MG, DAILY
     Route: 048
  2. DILAUDID [Concomitant]
     Dosage: UNK
  3. MS CONTIN [Concomitant]
     Dosage: UNK

REACTIONS (2)
  - Breast cancer [Unknown]
  - Malaise [Not Recovered/Not Resolved]
